FAERS Safety Report 10328174 (Version 1)
Quarter: 2014Q3

REPORT INFORMATION
  Report Type: Spontaneous
  Country: FI (occurrence: FI)
  Receive Date: 20140721
  Receipt Date: 20140721
  Transmission Date: 20150326
  Serious: Yes (Hospitalization)
  Sender: FDA-Public Use
  Company Number: PHHY2014FI087714

PATIENT
  Sex: Male

DRUGS (5)
  1. EXFORGE [Suspect]
     Active Substance: AMLODIPINE BESYLATE\VALSARTAN
     Dosage: 1 DF, DAILY
     Route: 048
     Dates: start: 20140505, end: 20140516
  2. METOPROLOL [Concomitant]
     Active Substance: METOPROLOL
     Dosage: 23.7 MG, DAILY
     Route: 048
     Dates: start: 20120125
  3. FELODIPIN [Suspect]
     Active Substance: FELODIPINE
     Indication: HYPERTENSION
     Dosage: 5 MG, DAILY
     Route: 048
     Dates: start: 20131114
  4. LOSATRIX [Suspect]
     Active Substance: LOSARTAN POTASSIUM
     Indication: HYPERTENSION
     Dosage: 1000 MG, DAILY
     Route: 048
     Dates: start: 20100915, end: 20131114
  5. MAREVAN FORTE [Concomitant]
     Dosage: UNK UKN, UNK
     Dates: start: 20100525

REACTIONS (5)
  - Photopsia [Recovered/Resolved]
  - Aerophagia [Recovered/Resolved]
  - Dysarthria [Recovered/Resolved]
  - Cold sweat [Recovered/Resolved]
  - Malaise [Recovered/Resolved]
